FAERS Safety Report 22055000 (Version 1)
Quarter: 2023Q1

REPORT INFORMATION
  Report Type: Spontaneous
  Country: US (occurrence: US)
  Receive Date: 20230302
  Receipt Date: 20230302
  Transmission Date: 20230417
  Serious: No
  Sender: FDA-Public Use
  Company Number: US-FreseniusKabi-FK202302507

PATIENT

DRUGS (1)
  1. ROCURONIUM BROMIDE [Suspect]
     Active Substance: ROCURONIUM BROMIDE
     Indication: Product used for unknown indication
     Dosage: TOTAL 60 MG?POTENCY - 10 MG IN 1 ML (5 ML VIAL)
     Route: 042

REACTIONS (1)
  - Drug ineffective [Recovered/Resolved]
